FAERS Safety Report 13255974 (Version 1)
Quarter: 2017Q1

REPORT INFORMATION
  Report Type: Spontaneous
  Country: US (occurrence: US)
  Receive Date: 20170219
  Receipt Date: 20170219
  Transmission Date: 20170428
  Serious: Yes (Other)
  Sender: FDA-Public Use
  Company Number: None

PATIENT
  Age: 3 Year
  Sex: Female
  Weight: 18 kg

DRUGS (2)
  1. MIRALAX [Suspect]
     Active Substance: POLYETHYLENE GLYCOL 3350
     Indication: CONSTIPATION
     Dosage: QUANTITY:1 TEASPOON(S);?
     Route: 048
     Dates: start: 20161015, end: 20161022
  2. FIBER GUMMIES [Concomitant]

REACTIONS (2)
  - Aggression [None]
  - Anger [None]

NARRATIVE: CASE EVENT DATE: 20161024
